FAERS Safety Report 6975721-7 (Version None)
Quarter: 2010Q3

REPORT INFORMATION
  Report Type: 
  Country: None (occurrence: None)
  Receive Date: 20100910
  Receipt Date: 20090331
  Transmission Date: 20110219
  Serious: No
  Sender: FDA-Public Use
  Company Number: US-WYE-H08796009

PATIENT
  Sex: Female
  Weight: 56.75 kg

DRUGS (2)
  1. PRISTIQ [Suspect]
     Indication: ANXIETY
     Route: 048
     Dates: start: 20090210, end: 20090310
  2. BENADRYL [Concomitant]

REACTIONS (9)
  - ANXIETY [None]
  - DIARRHOEA [None]
  - DRUG WITHDRAWAL SYNDROME [None]
  - HALLUCINATION [None]
  - INSOMNIA [None]
  - MOVEMENT DISORDER [None]
  - NAUSEA [None]
  - PANIC ATTACK [None]
  - VOMITING [None]
